FAERS Safety Report 5104188-9 (Version None)
Quarter: 2006Q3

REPORT INFORMATION
  Report Type: 
  Country: None (occurrence: None)
  Receive Date: 20060911
  Receipt Date: 20060828
  Transmission Date: 20061208
  Serious: Yes (Hospitalization)
  Sender: FDA-Public Use
  Company Number: 2006MP001002

PATIENT
  Age: 69 Year
  Sex: Female

DRUGS (10)
  1. AGGRASTAT (TIROFIBAN HYDROCHLORIDE) [Suspect]
     Indication: CORONARY ANGIOPLASTY
     Dosage: IV
     Route: 042
     Dates: start: 20060731, end: 20060731
  2. HEPARIN [Suspect]
     Indication: CORONARY ANGIOPLASTY
     Dosage: 5000 IU, IV
     Route: 042
     Dates: start: 20060731, end: 20060731
  3. ASPIRIN LYSINE [Concomitant]
  4. ATENOLOL [Concomitant]
  5. ATORVASTATIN CALCIUM [Concomitant]
  6. INSULIN NEUTRAL [Concomitant]
  7. NITROGLYCERIN [Concomitant]
  8. PANTOPRAZOLE SODIUM [Concomitant]
  9. RAMIPRIL [Concomitant]
  10. TICLODIPINE HYDROCHLORIDE [Concomitant]

REACTIONS (2)
  - PLATELET COUNT DECREASED [None]
  - WHITE BLOOD CELL COUNT DECREASED [None]
